FAERS Safety Report 7573543-X (Version None)
Quarter: 2011Q2

REPORT INFORMATION
  Report Type: 
  Country: None (occurrence: None)
  Receive Date: 20110627
  Receipt Date: 20110621
  Transmission Date: 20111010
  Serious: Yes (Life-Threatening, Other)
  Sender: FDA-Public Use
  Company Number: PHHY2011JP55438

PATIENT
  Sex: Male

DRUGS (6)
  1. SIMULECT [Suspect]
     Dosage: 20 MG
     Route: 042
     Dates: start: 20070811
  2. SOLU-MEDROL [Concomitant]
     Indication: RENAL TRANSPLANT
     Dosage: 500 MG
     Dates: start: 20070817
  3. PROGRAF [Concomitant]
     Indication: RENAL TRANSPLANT
     Dosage: UNK
     Route: 048
     Dates: start: 20070801, end: 20070816
  4. SIMULECT [Suspect]
     Indication: RENAL TRANSPLANT
     Dosage: 20 MG
     Route: 042
     Dates: start: 20070807
  5. MEDROL [Concomitant]
     Indication: RENAL TRANSPLANT
     Dosage: UNK
     Dates: start: 20070807, end: 20070816
  6. PROGRAF [Concomitant]
     Dosage: UNK
     Route: 048
     Dates: start: 20070807, end: 20070809

REACTIONS (4)
  - RENAL IMPAIRMENT [None]
  - OLIGURIA [None]
  - POLYURIA [None]
  - SMALL INTESTINAL PERFORATION [None]
